FAERS Safety Report 10260159 (Version 1)
Quarter: 2014Q2

REPORT INFORMATION
  Report Type: Spontaneous
  Country: US (occurrence: US)
  Receive Date: 20140625
  Receipt Date: 20140625
  Transmission Date: 20141212
  Serious: No
  Sender: FDA-Public Use
  Company Number: US-GALDERMA-US14001397

PATIENT
  Sex: Female

DRUGS (2)
  1. DIFFERIN (ADAPALENE) GEL, 0.1% [Suspect]
     Route: 061
  2. UNKNOWN FACIAL MOISTURIZERS [Suspect]
     Indication: DRY SKIN PROPHYLAXIS
     Route: 061

REACTIONS (2)
  - Dry skin [Unknown]
  - Skin burning sensation [Unknown]
